FAERS Safety Report 19068728 (Version 1)
Quarter: 2021Q1

REPORT INFORMATION
  Report Type: Report from Study
  Country: ES (occurrence: ES)
  Receive Date: 20210329
  Receipt Date: 20210329
  Transmission Date: 20210420
  Serious: Yes (Death)
  Sender: FDA-Public Use
  Company Number: ES-TAKEDA-2021TUS020002

PATIENT
  Age: 79 Year

DRUGS (4)
  1. CYCLOPHOSPHAMIDE. [Suspect]
     Active Substance: CYCLOPHOSPHAMIDE
     Indication: PLASMA CELL LEUKAEMIA
     Dosage: UNK
     Route: 065
     Dates: start: 20200716
  2. BORTEZOMIB. [Suspect]
     Active Substance: BORTEZOMIB
     Indication: PLASMA CELL LEUKAEMIA
     Dosage: UNK
     Route: 065
     Dates: start: 20200716
  3. DARATUMUMAB [Suspect]
     Active Substance: DARATUMUMAB
     Indication: PLASMA CELL LEUKAEMIA
     Dosage: UNK
     Route: 065
     Dates: start: 20200716
  4. DEXAMETHASONE. [Suspect]
     Active Substance: DEXAMETHASONE
     Indication: PLASMA CELL LEUKAEMIA
     Dosage: UNK
     Route: 065
     Dates: start: 20200716

REACTIONS (5)
  - Pseudomonal sepsis [Fatal]
  - Off label use [Unknown]
  - Product use in unapproved indication [Unknown]
  - Nervous system disorder [Fatal]
  - Neutropenia [Fatal]

NARRATIVE: CASE EVENT DATE: 20200829
